FAERS Safety Report 9513057 (Version 1)
Quarter: 2013Q3

REPORT INFORMATION
  Report Type: Spontaneous
  Country: CH (occurrence: CH)
  Receive Date: 20130910
  Receipt Date: 20130910
  Transmission Date: 20140515
  Serious: Yes (Hospitalization)
  Sender: FDA-Public Use
  Company Number: CH-PFIZER INC-2013257305

PATIENT
  Age: 67 Year
  Sex: Female

DRUGS (3)
  1. MORPHINE [Suspect]
     Indication: PAIN
  2. CALCIUM CARBONATE [Suspect]
     Indication: OSTEOPOROSIS
     Dosage: UNK
  3. CALCIUM CARBONATE [Suspect]
     Indication: DIURETIC THERAPY

REACTIONS (3)
  - Overdose [Unknown]
  - Vomiting [Unknown]
  - Milk-alkali syndrome [Unknown]
